FAERS Safety Report 7525030-2 (Version None)
Quarter: 2011Q2

REPORT INFORMATION
  Report Type: 
  Country: None (occurrence: None)
  Receive Date: 20110606
  Receipt Date: 20110523
  Transmission Date: 20111010
  Serious: Yes (Hospitalization, Other)
  Sender: FDA-Public Use
  Company Number: US-AMGEN-USASP2011026784

PATIENT
  Age: 60 Year
  Sex: Female

DRUGS (13)
  1. CALCIUM SANDOZ                     /01767901/ [Concomitant]
  2. HUMIRA [Concomitant]
     Dosage: 40 MG, Q2WK
     Route: 058
     Dates: start: 20110401, end: 20110418
  3. HUMIRA [Concomitant]
     Indication: PSORIATIC ARTHROPATHY
     Dosage: 40 MG, Q2WK
     Route: 058
     Dates: start: 20110101, end: 20110322
  4. TRAZODONE HCL [Concomitant]
  5. HUMIRA [Concomitant]
     Dosage: 40 MG, Q2WK
     Route: 058
     Dates: start: 20110101, end: 20110322
  6. HUMIRA [Concomitant]
     Indication: RHEUMATOID ARTHRITIS
     Dosage: 40 MG, Q2WK
     Route: 058
     Dates: start: 20101020, end: 20101201
  7. HUMIRA [Concomitant]
     Dosage: 40 MG, Q2WK
     Route: 058
     Dates: start: 20110401, end: 20110418
  8. FLUOXETINE HCL [Concomitant]
     Dosage: 20 MG, Q12H
  9. FOLIC ACID [Concomitant]
  10. MULTIVITAMIN                       /00097801/ [Concomitant]
  11. ENBREL [Suspect]
     Indication: PRODUCT USED FOR UNKNOWN INDICATION
     Dosage: UNK
     Dates: start: 20050101
  12. PANTOPRAZOLE [Concomitant]
  13. FISH OIL [Concomitant]

REACTIONS (6)
  - INFUSION SITE PAIN [None]
  - OEDEMA PERIPHERAL [None]
  - THROMBOSIS [None]
  - HYPOTENSION [None]
  - PHLEBITIS [None]
  - VERTIGO [None]
